FAERS Safety Report 10429945 (Version 2)
Quarter: 2014Q3

REPORT INFORMATION
  Report Type: Spontaneous
  Country: RU (occurrence: RU)
  Receive Date: 20140904
  Receipt Date: 20140919
  Transmission Date: 20150326
  Serious: Yes (Other)
  Sender: FDA-Public Use
  Company Number: RU-BAYER-2014-129904

PATIENT
  Age: 20 Year
  Sex: Male

DRUGS (2)
  1. MAGNEVIST [Suspect]
     Active Substance: GADOPENTETATE DIMEGLUMINE
     Dosage: 15 ML, ONCE
     Dates: start: 20140827, end: 20140827
  2. MAGNEVIST [Suspect]
     Active Substance: GADOPENTETATE DIMEGLUMINE
     Dosage: UNK ML, UNK

REACTIONS (2)
  - Suspected counterfeit product [None]
  - Drug ineffective [None]

NARRATIVE: CASE EVENT DATE: 20140827
